FAERS Safety Report 16639752 (Version 2)
Quarter: 2019Q3

REPORT INFORMATION
  Report Type: Report from Study
  Country: None (occurrence: US)
  Receive Date: 20190727
  Receipt Date: 20190729
  Transmission Date: 20191004
  Serious: Yes (Other)
  Sender: FDA-Public Use
  Company Number: US-ABBVIE-19K-163-2772462-00

PATIENT
  Age: 63 Year
  Sex: Male

DRUGS (2)
  1. TRAMADOL. [Suspect]
     Active Substance: TRAMADOL
     Indication: PSORIATIC ARTHROPATHY
     Route: 065
  2. HUMIRA [Suspect]
     Active Substance: ADALIMUMAB
     Indication: PSORIASIS
     Route: 058
     Dates: start: 20190323, end: 20190706

REACTIONS (8)
  - Asthenia [Not Recovered/Not Resolved]
  - Hypotension [Recovering/Resolving]
  - Syncope [Unknown]
  - Decreased appetite [Not Recovered/Not Resolved]
  - Loss of consciousness [Recovered/Resolved]
  - Weight decreased [Recovering/Resolving]
  - Limb injury [Unknown]
  - Nausea [Not Recovered/Not Resolved]

NARRATIVE: CASE EVENT DATE: 2019
